FAERS Safety Report 24875354 (Version 1)
Quarter: 2025Q1

REPORT INFORMATION
  Report Type: Spontaneous
  Country: CH (occurrence: CH)
  Receive Date: 20250122
  Receipt Date: 20250122
  Transmission Date: 20250409
  Serious: Yes (Death, Life-Threatening, Hospitalization, Other)
  Sender: MERCK
  Company Number: None

PATIENT
  Age: 50 Year
  Sex: Female
  Weight: 109 kg

DRUGS (33)
  1. INVANZ [Suspect]
     Active Substance: ERTAPENEM SODIUM
     Dosage: 0.5 GRAM, Q24H
     Route: 040
     Dates: start: 20241102
  2. ENOXAPARIN SODIUM [Suspect]
     Active Substance: ENOXAPARIN SODIUM
     Dosage: 40 MILLIGRAM, Q12H
     Route: 058
     Dates: start: 20241107
  3. ENOXAPARIN SODIUM [Suspect]
     Active Substance: ENOXAPARIN SODIUM
     Dosage: 40 MILLIGRAM, QD
     Route: 058
     Dates: start: 20241029, end: 20241031
  4. HEPARIN [Concomitant]
     Active Substance: HEPARIN SODIUM
     Dates: start: 20241205, end: 20241213
  5. ASPIRIN [Concomitant]
     Active Substance: ASPIRIN
     Dosage: 100 MILLIGRAM, Q24H
     Route: 048
     Dates: end: 20241127
  6. VALDOXAN [Concomitant]
     Active Substance: AGOMELATINE
     Dosage: 25 MILLIGRAM, Q24H
     Route: 048
  7. CREON [Concomitant]
     Active Substance: PANCRELIPASE AMYLASE\PANCRELIPASE LIPASE\PANCRELIPASE PROTEASE
     Dosage: 3 DOSAGE FORM, Q8H
     Route: 048
  8. ATORVASTATIN MEPHA TEVA [Concomitant]
     Dosage: 20 MILLIGRAM, Q24H
     Route: 048
  9. GLYCOL SALICYLATE [Concomitant]
     Active Substance: GLYCOL SALICYLATE
     Indication: Arthralgia
     Dosage: 350 MG/G AS NEED
     Route: 061
  10. GLYCOL SALICYLATE [Concomitant]
     Active Substance: GLYCOL SALICYLATE
     Indication: Myalgia
  11. CALCIUM CARBONATE\CHOLECALCIFEROL [Concomitant]
     Active Substance: CALCIUM CARBONATE\CHOLECALCIFEROL
     Dosage: 2 DOSAGE FORM, Q8H
     Route: 048
  12. DESMOPRESSIN ACETATE [Concomitant]
     Active Substance: DESMOPRESSIN ACETATE
     Dosage: 60 MICROGRAM, Q12H
     Route: 060
  13. LYMAN [ALLANTOIN;DEXPANTHENOL;HEPARIN SODIUM] [Concomitant]
     Dosage: 50000 U, Q12H
     Route: 061
  14. HYDROCORTISONE [Concomitant]
     Active Substance: HYDROCORTISONE
     Dosage: 20 MILLIGRAM, Q24H
     Route: 048
  15. HYDROCORTISONE [Concomitant]
     Active Substance: HYDROCORTISONE
     Dosage: 10 MILLIGRAM, Q24H
     Route: 048
  16. HYDROCORTISONE [Concomitant]
     Active Substance: HYDROCORTISONE
     Dosage: 5 MILLIGRAM, Q24H
     Route: 048
  17. LAMICTAL [Concomitant]
     Active Substance: LAMOTRIGINE
     Dosage: 100 MILLIGRAM, Q12H
     Route: 048
  18. LAMICTAL [Concomitant]
     Active Substance: LAMOTRIGINE
     Dosage: 50 MILLIGRAM, Q24H
     Route: 048
  19. LEVOTHYROXINE [Concomitant]
     Active Substance: LEVOTHYROXINE
     Dosage: 125 MICROGRAM, Q24H
     Route: 048
     Dates: start: 20241128, end: 20241211
  20. LEVOTHYROXINE [Concomitant]
     Active Substance: LEVOTHYROXINE
     Dosage: 150 MICROGRAM, Q24H
     Route: 048
     Dates: start: 20241212
  21. METAMIZOLE [Concomitant]
     Active Substance: METAMIZOLE
     Dosage: 500 MILLIGRAM, Q6H PRN
     Route: 048
  22. MIRABEGRON [Concomitant]
     Active Substance: MIRABEGRON
     Dosage: 25 MILLIGRAM, Q24H
     Route: 048
  23. POLYETHYLENE GLYCOL 3350\POTASSIUM CHLORIDE\SODIUM BICARBONATE\SODIUM [Concomitant]
     Active Substance: POLYETHYLENE GLYCOL 3350\POTASSIUM CHLORIDE\SODIUM BICARBONATE\SODIUM CHLORIDE
     Indication: Constipation
     Route: 048
  24. NEURONTIN [Concomitant]
     Active Substance: GABAPENTIN
     Dosage: 300 MILLIGRAM, Q24H
     Route: 048
  25. SODIUM BICARBONATE [Concomitant]
     Active Substance: SODIUM BICARBONATE
     Dosage: 1000 MILLIGRAM, Q8H
     Route: 048
     Dates: start: 20241114, end: 20241120
  26. PANTOPRAZOLE SODIUM [Concomitant]
     Active Substance: PANTOPRAZOLE SODIUM
     Dosage: 40 MILLIGRAM, Q24H
     Route: 048
  27. ROCALTROL [Concomitant]
     Active Substance: CALCITRIOL
     Dosage: 0.5 MICROGRAM, Q12H
  28. SPASMO URGENIN TC [Concomitant]
     Dosage: 20 MILLIGRAM, Q12H
     Route: 048
  29. BALDRIAN HOPFEN [Concomitant]
     Route: 048
  30. METOCLOPRAMIDE HYDROCHLORIDE [Concomitant]
     Active Substance: METOCLOPRAMIDE HYDROCHLORIDE
     Route: 048
  31. MIDAZOLAM [Concomitant]
     Active Substance: MIDAZOLAM
     Indication: Seizure
     Dosage: 1 SPRAY/NASAL CAVITY, PRN
     Route: 045
  32. SODIUM PICOSULFATE [Concomitant]
     Active Substance: SODIUM PICOSULFATE
     Indication: Constipation
     Route: 048
  33. ALBUTEROL [Concomitant]
     Active Substance: ALBUTEROL
     Indication: Dyspnoea
     Dosage: 2.5 MILLILITER, PRN Q4H
     Route: 055

REACTIONS (2)
  - Thrombocytopenia [Fatal]
  - Haemorrhage [Fatal]

NARRATIVE: CASE EVENT DATE: 20241101
